FAERS Safety Report 23061935 (Version 3)
Quarter: 2024Q2

REPORT INFORMATION
  Report Type: Spontaneous
  Country: US (occurrence: US)
  Receive Date: 20231013
  Receipt Date: 20240405
  Transmission Date: 20240716
  Serious: Yes (Hospitalization, Other)
  Sender: FDA-Public Use
  Company Number: US-BRISTOL-MYERS SQUIBB COMPANY-2023-143767

PATIENT
  Age: 78 Year
  Sex: Male

DRUGS (8)
  1. REVLIMID [Suspect]
     Active Substance: LENALIDOMIDE
     Indication: Plasma cell myeloma
     Dosage: FOR 14 DAYS
     Route: 048
     Dates: start: 20230225
  2. REVLIMID [Suspect]
     Active Substance: LENALIDOMIDE
     Dosage: QD 21 DAYS
     Dates: start: 20230816
  3. REVLIMID [Suspect]
     Active Substance: LENALIDOMIDE
     Dosage: BEDTIME FOR 3 WEEKS ON AND 7 DAYS OFF
     Route: 048
     Dates: start: 202302
  4. XARELTO [Concomitant]
     Active Substance: RIVAROXABAN
     Indication: Product used for unknown indication
  5. ZYRTEC [Concomitant]
     Active Substance: CETIRIZINE HYDROCHLORIDE
     Indication: Product used for unknown indication
     Dosage: IN THE MORNING
  6. FLONASE [Concomitant]
     Active Substance: FLUTICASONE PROPIONATE
     Indication: Product used for unknown indication
     Dosage: BEDTIME
  7. DEXAMETHASONE [Concomitant]
     Active Substance: DEXAMETHASONE
     Indication: Product used for unknown indication
     Dosage: EVERY TUESDAY (ALTERNATING WITH 10MG AND 4MG)
  8. VELCADE [Concomitant]
     Active Substance: BORTEZOMIB
     Indication: Product used for unknown indication

REACTIONS (13)
  - Thrombosis [Not Recovered/Not Resolved]
  - Neuropathy peripheral [Unknown]
  - Off label use [Unknown]
  - Onychoclasis [Unknown]
  - Onychoclasis [Unknown]
  - Hyperhidrosis [Unknown]
  - Muscle spasms [Unknown]
  - Tremor [Unknown]
  - Blood test abnormal [Unknown]
  - Spinal pain [Unknown]
  - Fatigue [Unknown]
  - Dehydration [Unknown]
  - Pollakiuria [Unknown]

NARRATIVE: CASE EVENT DATE: 20230801
